FAERS Safety Report 7222370-1 (Version None)
Quarter: 2011Q1

REPORT INFORMATION
  Report Type: 
  Country: None (occurrence: None)
  Receive Date: 20110103
  Receipt Date: 20101228
  Transmission Date: 20110831
  Serious: Yes (Hospitalization)
  Sender: FDA-Public Use
  Company Number: 2010SP066374

PATIENT
  Sex: Female

DRUGS (1)
  1. MARVELON (DESOGESTREL/ETHINYLESTRADIOL [Suspect]
     Indication: CONTRACEPTION
     Dosage: 1 DF, QD;PO
     Route: 048

REACTIONS (1)
  - MESENTERIC ARTERY THROMBOSIS [None]
